FAERS Safety Report 9782864 (Version 1)
Quarter: 2013Q4

REPORT INFORMATION
  Report Type: Spontaneous
  Country: US (occurrence: None)
  Receive Date: 20131224
  Receipt Date: 20131224
  Transmission Date: 20140711
  Serious: No
  Sender: FDA-Public Use
  Company Number: None

PATIENT
  Age: 68 Year
  Sex: Female

DRUGS (1)
  1. ORENCIA [Suspect]
     Indication: RHEUMATOID ARTHRITIS
     Dosage: 125MG  ONCE WEEKLY  SUBCUTANEOUS
     Route: 058
     Dates: end: 20131008

REACTIONS (5)
  - Adverse reaction [None]
  - Inflammation [None]
  - Oral disorder [None]
  - Gingival pain [None]
  - Skin reaction [None]
